FAERS Safety Report 9812204 (Version 2)
Quarter: 2014Q1

REPORT INFORMATION
  Report Type: Report from Study
  Country: FR (occurrence: FR)
  Receive Date: 20140112
  Receipt Date: 20140319
  Transmission Date: 20141002
  Serious: Yes (Death)
  Sender: FDA-Public Use
  Company Number: FR-ROCHE-1331816

PATIENT
  Sex: 0

DRUGS (1)
  1. ALTEPLASE [Suspect]
     Indication: ISCHAEMIC STROKE
     Dosage: 0.9 MG/KG, MAXIMUM 90 MG, 10% AS BOLUS FOLLOWED BY A 60 MIN INFUSION (NR)
     Route: 042

REACTIONS (1)
  - Sudden death [Fatal]
